FAERS Safety Report 11100885 (Version 1)
Quarter: 2015Q2

REPORT INFORMATION
  Report Type: Spontaneous
  Country: DE (occurrence: DE)
  Receive Date: 20150508
  Receipt Date: 20150508
  Transmission Date: 20150821
  Serious: Yes (Hospitalization)
  Sender: FDA-Public Use
  Company Number: DE-BAUSCH-BL-2015-013125

PATIENT
  Age: 53 Year
  Sex: Female

DRUGS (7)
  1. KLIMADYNON [Concomitant]
     Indication: PRODUCT USED FOR UNKNOWN INDICATION
  2. FLUANXOL [Suspect]
     Active Substance: FLUPENTIXOL
     Indication: PRODUCT USED FOR UNKNOWN INDICATION
     Route: 048
     Dates: start: 20081103, end: 20090603
  3. TIAPRIDEX [Concomitant]
     Active Substance: TIAPRIDE
     Indication: PRODUCT USED FOR UNKNOWN INDICATION
     Dates: start: 20090720, end: 20100113
  4. NITOMAN [Suspect]
     Active Substance: TETRABENAZINE
     Indication: PRODUCT USED FOR UNKNOWN INDICATION
     Route: 048
     Dates: start: 20091127, end: 20100304
  5. VENLAFLAXIN [Suspect]
     Active Substance: VENLAFAXINE HYDROCHLORIDE
     Indication: PRODUCT USED FOR UNKNOWN INDICATION
     Route: 048
     Dates: start: 20021115
  6. ZOLPIDEM [Concomitant]
     Active Substance: ZOLPIDEM\ZOLPIDEM TARTRATE
     Indication: PRODUCT USED FOR UNKNOWN INDICATION
     Dates: start: 20090212
  7. HYPNOREX [Concomitant]
     Active Substance: LITHIUM CARBONATE
     Indication: PRODUCT USED FOR UNKNOWN INDICATION
     Dates: start: 20090212

REACTIONS (7)
  - Fatigue [Unknown]
  - Tremor [None]
  - Akathisia [Unknown]
  - Listless [Unknown]
  - Impaired driving ability [None]
  - Dyskinesia [None]
  - Akathisia [None]

NARRATIVE: CASE EVENT DATE: 20100119
